FAERS Safety Report 11341702 (Version 1)
Quarter: 2015Q3

REPORT INFORMATION
  Report Type: Spontaneous
  Country: US (occurrence: None)
  Receive Date: 20150803
  Receipt Date: 20150803
  Transmission Date: 20151125
  Serious: No
  Sender: FDA-Public Use
  Company Number: None

PATIENT
  Age: 22 Year
  Sex: Female
  Weight: 72.58 kg

DRUGS (2)
  1. CIPRO [Suspect]
     Active Substance: CIPROFLOXACIN HYDROCHLORIDE
     Dates: start: 20150727, end: 20150730
  2. NECON BIRTH CONTROL [Concomitant]

REACTIONS (6)
  - Oropharyngeal pain [None]
  - Pain in extremity [None]
  - Pain [None]
  - Back pain [None]
  - Headache [None]
  - Dysphonia [None]

NARRATIVE: CASE EVENT DATE: 20150727
